FAERS Safety Report 13769705 (Version 1)
Quarter: 2017Q3

REPORT INFORMATION
  Report Type: Spontaneous
  Country: GB (occurrence: GB)
  Receive Date: 20170719
  Receipt Date: 20170719
  Transmission Date: 20171127
  Serious: Yes (Other)
  Sender: FDA-Public Use
  Company Number: GB-PFIZER INC-2990349

PATIENT
  Age: 36 Year
  Sex: Female

DRUGS (2)
  1. PACLITAXEL. [Suspect]
     Active Substance: PACLITAXEL
     Indication: BREAST CANCER
     Dosage: 160 MG, 1 DOSE
     Route: 041
     Dates: start: 20150727
  2. PACLITAXEL. [Suspect]
     Active Substance: PACLITAXEL
     Dosage: 160 MG, 1 DOSE
     Route: 041
     Dates: start: 20150727

REACTIONS (4)
  - Dizziness [Recovered/Resolved]
  - Pain [Recovered/Resolved]
  - Flushing [Recovered/Resolved]
  - Back pain [Recovered/Resolved]

NARRATIVE: CASE EVENT DATE: 20150727
